FAERS Safety Report 5521743-2 (Version None)
Quarter: 2007Q4

REPORT INFORMATION
  Report Type: 
  Country: None (occurrence: None)
  Receive Date: 20071120
  Receipt Date: 20071109
  Transmission Date: 20080405
  Serious: Yes (Hospitalization)
  Sender: FDA-Public Use
  Company Number: JP-NOVOPROD-269225

PATIENT
  Age: 56 Year
  Sex: Male
  Weight: 53 kg

DRUGS (7)
  1. NOVORAPID CHU FLEXPEN [Suspect]
     Indication: INSULIN-REQUIRING TYPE II DIABETES MELLITUS
     Dosage: 1 + 6 + 4
     Route: 058
     Dates: start: 20071019
  2. CONIEL [Concomitant]
  3. LAPRAZOL [Concomitant]
  4. VOGLIBOSE [Concomitant]
  5. AMARYL [Concomitant]
  6. NELBIS [Concomitant]
  7. MUCOSOLATE [Concomitant]

REACTIONS (2)
  - CHOLELITHIASIS [None]
  - JAUNDICE [None]
